FAERS Safety Report 7679531-7 (Version None)
Quarter: 2011Q3

REPORT INFORMATION
  Report Type: 
  Country: None (occurrence: None)
  Receive Date: 20110812
  Receipt Date: 20110804
  Transmission Date: 20111222
  Serious: Yes (Death, Other)
  Sender: FDA-Public Use
  Company Number: US-GENZYME-CLOF-1001733

PATIENT

DRUGS (5)
  1. CLOLAR [Suspect]
     Indication: LANGERHANS' CELL HISTIOCYTOSIS
     Dosage: 3-5 DAYS PER CYCLE
     Route: 065
  2. CLOLAR [Suspect]
     Dosage: 3-5 DAYS PER CYCLE
     Route: 065
  3. CLOLAR [Suspect]
     Dosage: 3-5 DAYS PER CYCLE
     Route: 065
  4. CLOLAR [Suspect]
     Dosage: 3-5 DAYS PER CYCLE
     Route: 065
  5. CLOLAR [Suspect]
     Dosage: 3-5 DAYS PER CYCLE
     Route: 065

REACTIONS (2)
  - LANGERHANS' CELL HISTIOCYTOSIS [None]
  - BONE MARROW FAILURE [None]
